FAERS Safety Report 16625817 (Version 2)
Quarter: 2019Q3

REPORT INFORMATION
  Report Type: Spontaneous
  Country: GT (occurrence: GT)
  Receive Date: 20190724
  Receipt Date: 20190808
  Transmission Date: 20191004
  Serious: Yes (Other)
  Sender: FDA-Public Use
  Company Number: GT-ELI_LILLY_AND_COMPANY-GT201907008753

PATIENT
  Age: 75 Year
  Sex: Female

DRUGS (8)
  1. METFORMIN [Concomitant]
     Active Substance: METFORMIN HYDROCHLORIDE
     Dosage: UNK UNK, BID (INCREASED DOSE)
     Route: 065
  2. LINAGLIPTIN [Concomitant]
     Active Substance: LINAGLIPTIN
     Dosage: 10 MG, UNKNOWN (INCREASED DOSE)
     Route: 065
  3. COAPROVEL [Concomitant]
     Active Substance: HYDROCHLOROTHIAZIDE\IRBESARTAN
     Indication: PRODUCT USED FOR UNKNOWN INDICATION
  4. METFORMIN [Concomitant]
     Active Substance: METFORMIN HYDROCHLORIDE
     Indication: BLOOD GLUCOSE INCREASED
     Dosage: UNK UNK, UNKNOWN
     Route: 065
  5. LINAGLIPTIN [Concomitant]
     Active Substance: LINAGLIPTIN
     Indication: PRODUCT USED FOR UNKNOWN INDICATION
     Dosage: UNK UNK, UNKNOWN
     Route: 065
  6. INSULIN DEGLUDEC [Concomitant]
     Active Substance: INSULIN DEGLUDEC
     Indication: BLOOD GLUCOSE INCREASED
     Dosage: UNK, UNKNOWN
     Route: 065
  7. INSULIN DEGLUDEC [Concomitant]
     Active Substance: INSULIN DEGLUDEC
     Dosage: UNK, UNKNOWN (INCREASED DOSE)
     Route: 065
  8. TRULICITY [Suspect]
     Active Substance: DULAGLUTIDE
     Indication: BLOOD GLUCOSE INCREASED
     Dosage: UNK UNK, UNKNOWN
     Route: 065
     Dates: start: 20190709

REACTIONS (9)
  - Respiratory distress [Recovered/Resolved]
  - Headache [Recovered/Resolved]
  - Choking sensation [Recovered/Resolved]
  - Hypophagia [Recovered/Resolved]
  - Altered state of consciousness [Recovered/Resolved]
  - Dizziness [Recovered/Resolved]
  - Nausea [Recovered/Resolved]
  - Abdominal pain upper [Recovered/Resolved]
  - Vertigo [Recovered/Resolved]

NARRATIVE: CASE EVENT DATE: 20190709
